FAERS Safety Report 20761338 (Version 1)
Quarter: 2022Q2

REPORT INFORMATION
  Report Type: Spontaneous
  Country: US (occurrence: US)
  Receive Date: 20220428
  Receipt Date: 20220428
  Transmission Date: 20220721
  Serious: Yes (Death, Other)
  Sender: FDA-Public Use
  Company Number: US-AMGEN-USASP2022070718

PATIENT
  Age: 88 Year
  Sex: Male

DRUGS (3)
  1. BEVACIZUMAB [Suspect]
     Active Substance: BEVACIZUMAB
     Indication: Metastatic malignant melanoma
     Dosage: 1.25 MILLIGRAM
     Route: 065
  2. MELPHALAN [Concomitant]
     Active Substance: MELPHALAN
     Dosage: 10 MICROGRAM X 1
  3. MELPHALAN [Concomitant]
     Active Substance: MELPHALAN
     Dosage: 20 MICROGRAM X 2

REACTIONS (3)
  - Metastatic malignant melanoma [Fatal]
  - Drug effective for unapproved indication [Unknown]
  - Off label use [Unknown]
